FAERS Safety Report 10433065 (Version 2)
Quarter: 2014Q3

REPORT INFORMATION
  Report Type: Spontaneous
  Country: BR (occurrence: BR)
  Receive Date: 20140905
  Receipt Date: 20140905
  Transmission Date: 20150326
  Serious: Yes (Hospitalization)
  Sender: FDA-Public Use
  Company Number: BR-ASTRAZENECA-2012SE73819

PATIENT
  Age: 80 Year
  Sex: Female
  Weight: 68.9 kg

DRUGS (7)
  1. BRILINTA [Suspect]
     Active Substance: TICAGRELOR
     Indication: STENT PLACEMENT
     Route: 048
     Dates: start: 20120828
  2. NEXIUM [Suspect]
     Active Substance: ESOMEPRAZOLE MAGNESIUM
     Indication: ULCER
     Route: 048
     Dates: end: 20120827
  3. ALDACTONE [Concomitant]
     Active Substance: SPIRONOLACTONE
     Indication: STENT PLACEMENT
     Dates: start: 2012
  4. CRESTOR [Suspect]
     Active Substance: ROSUVASTATIN CALCIUM
     Indication: STENT PLACEMENT
     Route: 048
     Dates: start: 20120828
  5. VASTAREL [Concomitant]
     Active Substance: TRIMETAZIDINE DIHYDROCHLORIDE
     Indication: STENT PLACEMENT
     Dates: start: 2012
  6. NEXIUM [Suspect]
     Active Substance: ESOMEPRAZOLE MAGNESIUM
     Indication: ULCER
     Route: 048
     Dates: start: 20120828
  7. FORADIL [Concomitant]
     Active Substance: FORMOTEROL FUMARATE
     Indication: BRONCHIOLITIS
     Dates: start: 2012

REACTIONS (6)
  - Fatigue [Recovered/Resolved]
  - Bronchiolitis [Unknown]
  - Off label use [Unknown]
  - Dyspnoea [Recovered/Resolved]
  - Acute myocardial infarction [Recovered/Resolved]
  - Heart rate increased [Recovered/Resolved]

NARRATIVE: CASE EVENT DATE: 2012
